FAERS Safety Report 5257353-4 (Version None)
Quarter: 2007Q1

REPORT INFORMATION
  Report Type: 
  Country: None (occurrence: None)
  Receive Date: 20070307
  Receipt Date: 20070223
  Transmission Date: 20070707
  Serious: Yes (Disabling, Other)
  Sender: FDA-Public Use
  Company Number: DE-SOLVAY-00306003352

PATIENT
  Age: 811 Month
  Sex: Male
  Weight: 74 kg

DRUGS (3)
  1. CREON [Suspect]
     Indication: PANCREATIC INSUFFICIENCY
     Dosage: DAILY DOSE: 1 CAPSULE
     Route: 065
     Dates: start: 20060101
  2. CREON [Suspect]
     Dosage: DAILY DOSE: 3 DOSAGE FORM
     Route: 065
     Dates: start: 20060101
  3. CREON [Suspect]
     Dosage: DAILY DOSE: 9 DOSAGE FORM
     Route: 065
     Dates: start: 20060101

REACTIONS (3)
  - ABDOMINAL PAIN UPPER [None]
  - GASTROOESOPHAGEAL REFLUX DISEASE [None]
  - HEPATIC ENZYME INCREASED [None]
